FAERS Safety Report 19456019 (Version 2)
Quarter: 2021Q3

REPORT INFORMATION
  Report Type: Spontaneous
  Country: US (occurrence: US)
  Receive Date: 20210624
  Receipt Date: 20210702
  Transmission Date: 20211014
  Serious: Yes (Hospitalization, Other)
  Sender: FDA-Public Use
  Company Number: US-HETERO-HET2021US01229

PATIENT

DRUGS (8)
  1. CLONAZEPAM. [Interacting]
     Active Substance: CLONAZEPAM
     Indication: EPILEPSY
     Dosage: 0.25 MG, BID
     Route: 065
  2. MIRTAZAPINE. [Interacting]
     Active Substance: MIRTAZAPINE
     Indication: PRODUCT USED FOR UNKNOWN INDICATION
     Dosage: 30 MG, Q.H.S.
     Route: 065
  3. BACLOFEN. [Interacting]
     Active Substance: BACLOFEN
     Indication: PRODUCT USED FOR UNKNOWN INDICATION
     Dosage: 5 MG, TID AS NEEDED(PRN)
     Route: 065
  4. LEVETIRACETAM. [Suspect]
     Active Substance: LEVETIRACETAM
     Indication: PRODUCT USED FOR UNKNOWN INDICATION
     Dosage: 1000 MG, BID
     Route: 065
  5. LITHIUM. [Interacting]
     Active Substance: LITHIUM
     Indication: BIPOLAR DISORDER
     Dosage: 600 MG, BID
     Route: 065
  6. CARVEDILOL. [Interacting]
     Active Substance: CARVEDILOL
     Indication: ARTERIOSCLEROSIS CORONARY ARTERY
     Dosage: 3.125 MG, BID
     Route: 065
  7. CARBAMAZEPINE. [Interacting]
     Active Substance: CARBAMAZEPINE
     Indication: PRODUCT USED FOR UNKNOWN INDICATION
     Dosage: 200 MG, BID
     Route: 065
  8. ATORVASTATIN [Interacting]
     Active Substance: ATORVASTATIN
     Indication: PRODUCT USED FOR UNKNOWN INDICATION
     Dosage: 80 MG, QD
     Route: 065

REACTIONS (4)
  - Cardiotoxicity [Recovering/Resolving]
  - Toxicity to various agents [Recovering/Resolving]
  - Diarrhoea [Unknown]
  - Drug interaction [Unknown]
